FAERS Safety Report 17511054 (Version 3)
Quarter: 2022Q2

REPORT INFORMATION
  Report Type: Report from Study
  Country: US (occurrence: US)
  Receive Date: 20200306
  Receipt Date: 20220513
  Transmission Date: 20220720
  Serious: No
  Sender: FDA-Public Use
  Company Number: US-HARMONY BIOSCIENCES-2020HMY00054

PATIENT
  Age: 38 Year
  Sex: Male
  Weight: 113.38 kg

DRUGS (10)
  1. WAKIX [Suspect]
     Active Substance: PITOLISANT HYDROCHLORIDE
     Indication: Hypersomnia
     Dosage: 8.9 MG, 1X/DAY
     Route: 048
     Dates: start: 202001, end: 2020
  2. WAKIX [Suspect]
     Active Substance: PITOLISANT HYDROCHLORIDE
     Indication: Narcolepsy
  3. WAKIX [Suspect]
     Active Substance: PITOLISANT HYDROCHLORIDE
     Indication: Hypersomnia
     Dosage: 17.8 MG, 1X/DAY
     Route: 048
     Dates: start: 2020
  4. WAKIX [Suspect]
     Active Substance: PITOLISANT HYDROCHLORIDE
     Indication: Narcolepsy
  5. VITAMIN D-400 [Concomitant]
  6. LOSARTAN POTASSIUM [Concomitant]
     Active Substance: LOSARTAN POTASSIUM
  7. DEXEDRINE SA [Concomitant]
  8. PREDNISONE [Concomitant]
     Active Substance: PREDNISONE
  9. COLCHICINE [Concomitant]
     Active Substance: COLCHICINE
  10. AUGMENTIN [Concomitant]
     Active Substance: AMOXICILLIN\CLAVULANATE POTASSIUM

REACTIONS (1)
  - Drug ineffective [Not Recovered/Not Resolved]

NARRATIVE: CASE EVENT DATE: 20200114
